FAERS Safety Report 8783033 (Version 2)
Quarter: 2012Q4

REPORT INFORMATION
  Report Type: 
  Country: US (occurrence: US)
  Receive Date: 20120913
  Receipt Date: 20121128
  Transmission Date: 20130627
  Serious: No
  Sender: FDA-Public Use
  Company Number: US-VERTEX PHARMACEUTICAL INC.-AE-2012-008832

PATIENT
  Sex: Male
  Weight: 141 kg

DRUGS (6)
  1. VX-950 (TELAPREVIR) [Suspect]
     Indication: HEPATITIS C
     Dosage: 750 mg, tid
     Route: 048
     Dates: start: 20120327
  2. PEGASYS [Concomitant]
     Indication: HEPATITIS C
     Dosage: 180 ?g, UNK
     Route: 058
     Dates: start: 20120327
  3. RIBASPHERE [Concomitant]
     Indication: HEPATITIS C
     Dosage: 600 mg, bid
     Route: 048
     Dates: start: 20120327
  4. LISINOPRIL HCTZ [Concomitant]
     Dosage: 1 DF, qd
     Route: 048
  5. HYDROCODON HYDROCHLORID KSA [Concomitant]
     Dosage: 1 DF, prn
     Route: 048
  6. CLARITIN                           /00917501/ [Concomitant]
     Dosage: 1 DF, qd
     Route: 048

REACTIONS (5)
  - Insomnia [Unknown]
  - Fatigue [Unknown]
  - Anaemia [Unknown]
  - Nausea [Unknown]
  - Vomiting [Unknown]
